FAERS Safety Report 7366086-X (Version None)
Quarter: 2011Q1

REPORT INFORMATION
  Report Type: 
  Country: None (occurrence: None)
  Receive Date: 20110322
  Receipt Date: 20110316
  Transmission Date: 20110831
  Serious: Yes (Life-Threatening, Hospitalization, Other)
  Sender: FDA-Public Use
  Company Number: DE-SANOFI-AVENTIS-2011SA015818

PATIENT
  Age: 85 Year
  Sex: Male
  Weight: 80 kg

DRUGS (9)
  1. GODAMED [Concomitant]
     Dosage: 1X1 TABLET AT 100 MG DAILY PER OS
     Route: 048
     Dates: start: 20080101
  2. FERRLECIT [Suspect]
     Route: 042
     Dates: start: 20101010, end: 20101010
  3. FERRLECIT [Suspect]
     Route: 042
     Dates: start: 20100329, end: 20100329
  4. FERRLECIT [Suspect]
     Route: 042
     Dates: start: 20100919, end: 20100919
  5. BIOLECTRA MAGNESIUM [Concomitant]
     Dosage: 1X1 EFFERVESCENT TABLET AT 240 MG DAILY PER OS
     Route: 048
     Dates: start: 20080101, end: 20101012
  6. LACTULOSE [Concomitant]
     Indication: CONSTIPATION
     Dosage: 1X1 TABLESPOON DAILY PER OS
     Route: 048
     Dates: start: 20100801, end: 20101012
  7. INFLUVAC [Suspect]
     Route: 030
     Dates: start: 20101010, end: 20101010
  8. COLECALCIFEROL [Concomitant]
     Dosage: 3 WEEKS 3X1 DAILY, THEN 1X1 DAILY PER OS
     Route: 048
     Dates: start: 20100919, end: 20101012
  9. ISLA-MOOS [Concomitant]
     Dosage: 8X1 PASTILLE DAILY PER OS
     Route: 048
     Dates: start: 20091101, end: 20101012

REACTIONS (15)
  - RESPIRATORY FAILURE [None]
  - ABDOMINAL DISCOMFORT [None]
  - MULTI-ORGAN FAILURE [None]
  - NAUSEA [None]
  - SHOCK [None]
  - GENERAL PHYSICAL HEALTH DETERIORATION [None]
  - RENAL IMPAIRMENT [None]
  - DIARRHOEA [None]
  - FATIGUE [None]
  - RENAL FAILURE ACUTE [None]
  - BLOOD CREATININE INCREASED [None]
  - BRONCHOPNEUMONIA [None]
  - MALAISE [None]
  - ANURIA [None]
  - BLOOD UREA INCREASED [None]
